FAERS Safety Report 5154645-4 (Version None)
Quarter: 2006Q4

REPORT INFORMATION
  Report Type: 
  Country: None (occurrence: None)
  Receive Date: 20061113
  Receipt Date: 20061107
  Transmission Date: 20070319
  Serious: Yes (Death)
  Sender: FDA-Public Use
  Company Number: E2020-00662-SPO-GR

PATIENT
  Age: 75 Year
  Sex: Female

DRUGS (7)
  1. ARICEPT [Suspect]
     Indication: MEMORY IMPAIRMENT
     Dosage: 5 MG, 1 IN 1 D, ORAL
     Route: 048
     Dates: start: 20061026, end: 20061103
  2. DOGMATYL (SULPIRIDE) [Concomitant]
  3. AKINETON [Concomitant]
  4. NIMOTOP [Concomitant]
  5. FRUMIL [Concomitant]
  6. DITROPAN [Concomitant]
  7. PANCORAN (GLYCERYL TRINITRATE) [Concomitant]

REACTIONS (7)
  - ACUTE MYOCARDIAL INFARCTION [None]
  - ASTHENIA [None]
  - CONFUSIONAL STATE [None]
  - DIZZINESS [None]
  - GASTRIC DISORDER [None]
  - NAUSEA [None]
  - SOMNOLENCE [None]
